FAERS Safety Report 24308320 (Version 2)
Quarter: 2024Q4

REPORT INFORMATION
  Report Type: Spontaneous
  Country: JP (occurrence: JP)
  Receive Date: 20240911
  Receipt Date: 20241226
  Transmission Date: 20250114
  Serious: Yes (Death)
  Sender: EISAI
  Company Number: JP-Eisai-202407339_LEN-RCC_P_1

PATIENT

DRUGS (2)
  1. LENVIMA [Suspect]
     Active Substance: LENVATINIB
     Indication: Metastatic renal cell carcinoma
     Dosage: DOSE AND FREQUENCY UNKNOWN
     Route: 048
  2. KEYTRUDA [Concomitant]
     Active Substance: PEMBROLIZUMAB
     Indication: Metastatic renal cell carcinoma
     Dosage: DOSE AND FREQUENCY UNKNOWN
     Route: 042

REACTIONS (1)
  - Malignant neoplasm progression [Fatal]
